FAERS Safety Report 12633038 (Version 2)
Quarter: 2016Q3

REPORT INFORMATION
  Report Type: Spontaneous
  Country: US (occurrence: US)
  Receive Date: 20160808
  Receipt Date: 20160808
  Transmission Date: 20161109
  Serious: No
  Sender: FDA-Public Use
  Company Number: US-BEH-2016058244

PATIENT
  Age: 35 Year
  Sex: Female
  Weight: 54 kg

DRUGS (17)
  1. HIZENTRA [Suspect]
     Active Substance: HUMAN IMMUNOGLOBULIN G
     Indication: HYPOGAMMAGLOBULINAEMIA
     Route: 058
  2. ACETAMINOPHEN. [Concomitant]
     Active Substance: ACETAMINOPHEN
  3. LIDOCAINE. [Concomitant]
     Active Substance: LIDOCAINE
  4. PROGESTERONE. [Concomitant]
     Active Substance: PROGESTERONE
  5. SERTRALINE [Concomitant]
     Active Substance: SERTRALINE HYDROCHLORIDE
  6. PREGNENOLONE [Concomitant]
     Active Substance: PREGNENOLONE
  7. DIPHENHYDRAMINE. [Concomitant]
     Active Substance: DIPHENHYDRAMINE
  8. VITAMIN D [Concomitant]
     Active Substance: CHOLECALCIFEROL
  9. EPIPEN [Concomitant]
     Active Substance: EPINEPHRINE
  10. SINGULAIR [Concomitant]
     Active Substance: MONTELUKAST SODIUM
  11. KETOPROFEN. [Concomitant]
     Active Substance: KETOPROFEN
  12. VITAMIN C [Concomitant]
     Active Substance: ASCORBIC ACID
  13. NASACORT [Concomitant]
     Active Substance: TRIAMCINOLONE ACETONIDE
  14. GLUTAMINE [Concomitant]
     Active Substance: GLUTAMINE
  15. VITAMIN B COMPLEX [Concomitant]
     Active Substance: CYANOCOBALAMIN\DEXPANTHENOL\NIACINAMIDE\PYRIDOXINE HYDROCHLORIDE\RIBOFLAVIN 5^-PHOSPHATE SODIUM\THIAMINE HYDROCHLORIDE\VITAMIN B COMPLEX
  16. PROBIOTIC [Concomitant]
     Active Substance: PROBIOTICS NOS
  17. IRON [Concomitant]
     Active Substance: IRON

REACTIONS (5)
  - Infusion site swelling [Unknown]
  - Feeling jittery [Unknown]
  - Fatigue [Unknown]
  - Infusion site pruritus [Unknown]
  - Asthenia [Unknown]

NARRATIVE: CASE EVENT DATE: 20151202
